FAERS Safety Report 7427222-X (Version None)
Quarter: 2011Q2

REPORT INFORMATION
  Report Type: 
  Country: None (occurrence: None)
  Receive Date: 20110420
  Receipt Date: 20110414
  Transmission Date: 20111010
  Serious: No
  Sender: FDA-Public Use
  Company Number: US-PFIZER INC-2011065444

PATIENT
  Sex: Male

DRUGS (6)
  1. CAMPTOSAR [Suspect]
     Indication: COLORECTAL CANCER METASTATIC
     Dosage: UNK
  2. ELOXATIN [Suspect]
     Dosage: 210 MG, UNK
     Dates: start: 20110221
  3. FLUOROURACIL [Concomitant]
     Indication: COLORECTAL CANCER METASTATIC
     Dosage: UNK
     Dates: start: 20101201
  4. ERBITUX [Suspect]
     Indication: COLORECTAL CANCER METASTATIC
     Dosage: UNK
  5. ELOXATIN [Suspect]
     Indication: COLORECTAL CANCER METASTATIC
     Dosage: UNK
     Dates: start: 20101201
  6. LEUCOVORIN [Concomitant]
     Indication: COLORECTAL CANCER METASTATIC
     Dosage: UNK
     Dates: start: 20101201

REACTIONS (2)
  - DIARRHOEA [None]
  - RASH [None]
